FAERS Safety Report 8409313 (Version 2)
Quarter: 2012Q4

REPORT INFORMATION
  Report Type: Spontaneous
  Country: US (occurrence: None)
  Receive Date: 20111227
  Receipt Date: 20120426
  Transmission Date: 20130627
  Serious: No
  Sender: FDA-Public Use
  Company Number: PHHY2011US16129

PATIENT
  Age: 49 Year
  Sex: Female

DRUGS (2)
  1. GILENYA [Suspect]
     Indication: RELAPSING-REMITTING MULTIPLE SCLEROSIS
     Route: 048
     Dates: start: 201102, end: 201111
  2. NEURONTIN (GABAPENTIN) ONGOING [Concomitant]

REACTIONS (11)
  - BURNING SENSATION [None]
  - NAUSEA [None]
  - MOBILITY DECREASED [None]
  - PARAESTHESIA [None]
  - INFLUENZA LIKE ILLNESS [None]
  - ASTHENIA [None]
  - MIGRAINE [None]
  - BLOOD PRESSURE INCREASED [None]
  - HEADACHE [None]
  - BACK PAIN [None]
  - DIZZINESS [None]
